FAERS Safety Report 20861506 (Version 1)
Quarter: 2022Q2

REPORT INFORMATION
  Report Type: Spontaneous
  Country: US (occurrence: None)
  Receive Date: 20220520
  Receipt Date: 20220520
  Transmission Date: 20220721
  Serious: Yes (Hospitalization)
  Sender: FDA-Public Use
  Company Number: None

PATIENT
  Age: 62 Year
  Sex: Male

DRUGS (1)
  1. NUCALA [Suspect]
     Active Substance: MEPOLIZUMAB
     Indication: Asthma
     Dosage: OTHER FREQUENCY : Q4W;?
     Route: 058
     Dates: start: 20191009

REACTIONS (3)
  - Influenza [None]
  - Dyspnoea [None]
  - Thrombosis [None]

NARRATIVE: CASE EVENT DATE: 20220519
